FAERS Safety Report 6252742-3 (Version None)
Quarter: 2009Q3

REPORT INFORMATION
  Report Type: 
  Country: None (occurrence: None)
  Receive Date: 20090701
  Receipt Date: 20090622
  Transmission Date: 20100115
  Serious: Yes (Other)
  Sender: FDA-Public Use
  Company Number: PHEH2008US09306

PATIENT
  Sex: Female

DRUGS (3)
  1. AREDIA [Suspect]
  2. ZOMETA [Suspect]
     Dosage: EVERY 4 WEEKS
     Dates: end: 20060701
  3. MIACALCIN [Concomitant]

REACTIONS (15)
  - ANHEDONIA [None]
  - ANXIETY [None]
  - ARTHRALGIA [None]
  - ASTHENIA [None]
  - DISABILITY [None]
  - INJURY [None]
  - MUSCLE SPASMS [None]
  - MUSCULOSKELETAL DISCOMFORT [None]
  - OSTEONECROSIS [None]
  - OSTEOPENIA [None]
  - PAIN [None]
  - TOOTH FRACTURE [None]
  - TOOTHACHE [None]
  - VITAMIN D DEFICIENCY [None]
  - WEIGHT INCREASED [None]
